FAERS Safety Report 6291725-4 (Version None)
Quarter: 2009Q3

REPORT INFORMATION
  Report Type: 
  Country: None (occurrence: None)
  Receive Date: 20090730
  Receipt Date: 20090723
  Transmission Date: 20100115
  Serious: Yes (Hospitalization, Other)
  Sender: FDA-Public Use
  Company Number: PHHO2009US06623

PATIENT
  Sex: Male
  Weight: 91 kg

DRUGS (13)
  1. RAD 666 RAD+TAB+CMAS [Suspect]
     Indication: COLORECTAL CANCER METASTATIC
     Dosage: 10 MG, QD
     Route: 048
     Dates: start: 20090512, end: 20090526
  2. ZOCOR [Suspect]
  3. BEVACIZUMAB [Suspect]
     Indication: COLORECTAL CANCER METASTATIC
     Dosage: 10 MG/KG Q14 DAYS
     Route: 048
     Dates: start: 20090512, end: 20090526
  4. FLUID/ELECTROLYTE REPLACEMENT THERAPY [Suspect]
  5. HYDROCHLOROTHIAZIDE [Concomitant]
  6. NOVOLIN R [Concomitant]
  7. NOVOLIN N [Concomitant]
  8. SIMVASTATIN [Concomitant]
  9. COMPAZINE [Concomitant]
  10. INSULIN [Concomitant]
  11. MULTI-VITAMIN [Concomitant]
  12. HYDROCORTISONE [Concomitant]
  13. M.V.I. [Concomitant]

REACTIONS (14)
  - ACTIVITIES OF DAILY LIVING IMPAIRED [None]
  - ARTHRALGIA [None]
  - ASPARTATE AMINOTRANSFERASE INCREASED [None]
  - ASTHENIA [None]
  - BLOOD CREATINE PHOSPHOKINASE INCREASED [None]
  - BONE PAIN [None]
  - CHROMATURIA [None]
  - FATIGUE [None]
  - MYALGIA [None]
  - MYOGLOBIN BLOOD INCREASED [None]
  - PAIN IN EXTREMITY [None]
  - PULMONARY OEDEMA [None]
  - PYREXIA [None]
  - RHABDOMYOLYSIS [None]
